FAERS Safety Report 10144975 (Version 2)
Quarter: 2014Q2

REPORT INFORMATION
  Report Type: Spontaneous
  Country: GR (occurrence: GR)
  Receive Date: 20140430
  Receipt Date: 20140623
  Transmission Date: 20141212
  Serious: Yes (Hospitalization)
  Sender: FDA-Public Use
  Company Number: GR-AMGEN-GRCSP2014031205

PATIENT
  Age: 76 Year
  Sex: Male

DRUGS (3)
  1. XGEVA [Suspect]
     Indication: BONE DENSITY DECREASED
     Dosage: 120 MG, Q4WK
     Route: 058
     Dates: start: 20140130
  2. XGEVA [Suspect]
     Indication: PROSTATE CANCER
  3. XTANDI [Concomitant]

REACTIONS (1)
  - Hypocalcaemia [Recovered/Resolved]
